FAERS Safety Report 19267062 (Version 1)
Quarter: 2021Q2

REPORT INFORMATION
  Report Type: Spontaneous
  Country: CA (occurrence: TZ)
  Receive Date: 20210517
  Receipt Date: 20210517
  Transmission Date: 20210717
  Serious: Yes (Life-Threatening, Hospitalization, Other)
  Sender: FDA-Public Use
  Company Number: CA-GLAXOSMITHKLINE-TZ2021GSK097454

PATIENT
  Age: 10 Year
  Sex: Female

DRUGS (3)
  1. LAMIVUDINE HIV [Suspect]
     Active Substance: LAMIVUDINE
     Indication: ANTIRETROVIRAL THERAPY
     Dosage: UNK
     Dates: end: 2016
  2. ZIDOVUDINE. [Suspect]
     Active Substance: ZIDOVUDINE
     Indication: ANTIRETROVIRAL THERAPY
     Dosage: UNK
     Dates: end: 2016
  3. EFAVIRENZ. [Suspect]
     Active Substance: EFAVIRENZ
     Indication: ANTIRETROVIRAL THERAPY
     Dosage: UNK
     Dates: end: 2016

REACTIONS (13)
  - Histoplasmosis [Recovered/Resolved]
  - Skin ulcer [Recovered/Resolved]
  - Anaemia [Recovered/Resolved]
  - Malnutrition [Recovered/Resolved]
  - Immunosuppression [Recovered/Resolved]
  - Weight decreased [Recovered/Resolved]
  - Treatment noncompliance [Unknown]
  - Virologic failure [Recovered/Resolved]
  - Pyrexia [Recovered/Resolved]
  - Skin plaque [Recovered/Resolved]
  - Skin induration [Recovered/Resolved]
  - Skin mass [Recovered/Resolved]
  - Cytopenia [Recovered/Resolved]
